FAERS Safety Report 23069847 (Version 1)
Quarter: 2023Q4

REPORT INFORMATION
  Report Type: Spontaneous
  Country: US (occurrence: None)
  Receive Date: 20231016
  Receipt Date: 20231016
  Transmission Date: 20240110
  Serious: Yes (Hospitalization)
  Sender: FDA-Public Use
  Company Number: None

PATIENT
  Age: 63 Year
  Sex: Female

DRUGS (2)
  1. ALCOHOL PREP PAD [Suspect]
     Active Substance: ISOPROPYL ALCOHOL
     Dosage: OTHER QUANTITY : 1 ALCOHOL PAD;?FREQUENCY : EVERY OTHER WEEK;?
  2. DUPIXENT [Suspect]
     Active Substance: DUPILUMAB

REACTIONS (1)
  - Hospitalisation [None]
